FAERS Safety Report 8785322 (Version 1)
Quarter: 2012Q4

REPORT INFORMATION
  Report Type: Spontaneous
  Country: TR (occurrence: None)
  Receive Date: 20120904
  Receipt Date: 20120904
  Transmission Date: 20130627
  Serious: Yes (Congenital Anomaly)
  Sender: FDA-Public Use
  Company Number: CIP-2012-00300

PATIENT

DRUGS (2)
  1. TOPIRAMATE [Suspect]
     Indication: DRUG USE FOR UNKNOWN INDICATION
     Route: 048
  2. OXCARBAZEPINE [Suspect]
     Indication: DRUG USE FOR UNKNOWN INDICATION

REACTIONS (7)
  - Oligohydramnios [None]
  - Limb deformity [None]
  - Renal aplasia [None]
  - Renal hypoplasia [None]
  - Congenital adrenal gland hypoplasia [None]
  - Limb reduction defect [None]
  - Exposure during pregnancy [None]
